FAERS Safety Report 5775079-5 (Version None)
Quarter: 2008Q2

REPORT INFORMATION
  Report Type: 
  Country: None (occurrence: None)
  Receive Date: 20080612
  Receipt Date: 20080602
  Transmission Date: 20081010
  Serious: Yes (Death, Hospitalization)
  Sender: FDA-Public Use
  Company Number: 2008AL006226

PATIENT
  Age: 86 Year
  Sex: Male

DRUGS (1)
  1. DIGOXIN [Suspect]
     Indication: CARDIAC DISORDER
     Dosage: 0.125 MG DAILY PO
     Route: 048

REACTIONS (5)
  - ABASIA [None]
  - DIZZINESS [None]
  - FALL [None]
  - STOMACH DISCOMFORT [None]
  - UNEVALUABLE EVENT [None]
